FAERS Safety Report 4865591-5 (Version None)
Quarter: 2005Q4

REPORT INFORMATION
  Report Type: 
  Country: None (occurrence: None)
  Receive Date: 20051220
  Receipt Date: 20051208
  Transmission Date: 20060501
  Serious: Yes (Other)
  Sender: FDA-Public Use
  Company Number: 2005167595

PATIENT
  Age: 59 Year
  Sex: Female
  Weight: 54 kg

DRUGS (6)
  1. ZYVOX [Suspect]
     Indication: CELLULITIS
     Dosage: 1200 MG (600 MG, 1 IN 12 HR), INTRAVENOUS
     Route: 042
     Dates: start: 20051116
  2. ZYVOX [Suspect]
     Indication: PNEUMONIA
     Dosage: 1200 MG (600 MG, 1 IN 12 HR), INTRAVENOUS
     Route: 042
     Dates: start: 20051116
  3. CLONIDINE [Concomitant]
  4. FOLIC ACID [Concomitant]
  5. LABETALOL HCL [Concomitant]
  6. MINOXIDIL [Concomitant]

REACTIONS (2)
  - INFECTION [None]
  - TARDIVE DYSKINESIA [None]
